FAERS Safety Report 15859218 (Version 2)
Quarter: 2019Q1

REPORT INFORMATION
  Report Type: Spontaneous
  Country: CA (occurrence: CA)
  Receive Date: 20190123
  Receipt Date: 20190220
  Transmission Date: 20190417
  Serious: Yes (Other)
  Sender: FDA-Public Use
  Company Number: CA-PFIZER INC-2018440007

PATIENT
  Age: 34 Year
  Sex: Female

DRUGS (1)
  1. XELJANZ [Suspect]
     Active Substance: TOFACITINIB CITRATE
     Indication: COLITIS ULCERATIVE
     Dosage: 10 MG, TWICE A DAY
     Route: 048
     Dates: start: 20181017

REACTIONS (13)
  - Arthralgia [Unknown]
  - Rectal haemorrhage [Unknown]
  - Gingival pain [Unknown]
  - Pain in extremity [Unknown]
  - Sensitivity to weather change [Unknown]
  - Back pain [Unknown]
  - Haemorrhoids [Unknown]
  - Drug effect incomplete [Not Recovered/Not Resolved]
  - Pain [Recovering/Resolving]
  - Inflammation [Unknown]
  - Condition aggravated [Unknown]
  - Product dose omission [Unknown]
  - Pyrexia [Unknown]
